FAERS Safety Report 20895485 (Version 1)
Quarter: 2022Q2

REPORT INFORMATION
  Report Type: Spontaneous
  Country: PT (occurrence: PT)
  Receive Date: 20220531
  Receipt Date: 20220531
  Transmission Date: 20220721
  Serious: Yes (Other)
  Sender: FDA-Public Use
  Company Number: PT-MYLANLABS-2022M1039949

PATIENT
  Age: 41 Year
  Sex: Female

DRUGS (8)
  1. GEMCITABINE [Suspect]
     Active Substance: GEMCITABINE
     Indication: Urachal abnormality
     Dosage: 1000 MILLIGRAM/SQ. METER, CYCLE (ON DAYS 1 AND 8, EVERY 3 WEEKS)
     Route: 065
     Dates: start: 201903, end: 201906
  2. GEMCITABINE [Suspect]
     Active Substance: GEMCITABINE
     Indication: Adenocarcinoma metastatic
  3. PACLITAXEL [Suspect]
     Active Substance: PACLITAXEL
     Indication: Urachal abnormality
     Dosage: 200 MILLIGRAM/SQ. METER, CYCLE (ON DAY 1, EVERY 3 WEEKS)
     Route: 065
     Dates: start: 201903, end: 201906
  4. PACLITAXEL [Suspect]
     Active Substance: PACLITAXEL
     Indication: Adenocarcinoma metastatic
  5. CISPLATIN [Suspect]
     Active Substance: CISPLATIN
     Indication: Urachal abnormality
     Dosage: 100 MILLIGRAM/SQ. METER, EVERY 4 WEEKS (RECEIVED 7 CYCLES)
     Route: 065
     Dates: start: 201805
  6. CISPLATIN [Suspect]
     Active Substance: CISPLATIN
     Indication: Adenocarcinoma metastatic
  7. FLUOROURACIL [Suspect]
     Active Substance: FLUOROURACIL
     Indication: Urachal abnormality
     Dosage: 1000 MILLIGRAM/SQ. METER, EVERY 4 WEEKS (RECEIVED 7 CYCLES)
     Route: 065
     Dates: start: 201805
  8. FLUOROURACIL [Suspect]
     Active Substance: FLUOROURACIL
     Indication: Adenocarcinoma metastatic

REACTIONS (1)
  - Drug ineffective [Unknown]
